FAERS Safety Report 5577876-8 (Version None)
Quarter: 2007Q4

REPORT INFORMATION
  Report Type: 
  Country: None (occurrence: None)
  Receive Date: 20071231
  Receipt Date: 20071222
  Transmission Date: 20080405
  Serious: Yes (Hospitalization)
  Sender: FDA-Public Use
  Company Number: US-SANOFI-SYNTHELABO-F01200701737

PATIENT
  Sex: Male

DRUGS (8)
  1. ATIVAN [Concomitant]
     Dates: start: 20070702
  2. PAXIL [Concomitant]
     Dates: start: 20070924
  3. MORPHINE [Concomitant]
     Dates: start: 20071116
  4. CONCOMITANT DRUG [Suspect]
     Indication: RECTAL CANCER
     Dosage: UNK
     Route: 065
  5. LEUCOVORIN [Suspect]
     Route: 042
     Dates: start: 20071126, end: 20071126
  6. FLUOROURACIL [Suspect]
     Dosage: 812 MG BOLUS THEN 4872 MG INFUSION
     Route: 042
     Dates: start: 20071126, end: 20071126
  7. BEVACIZUMAB [Suspect]
     Route: 042
     Dates: start: 20071126, end: 20071126
  8. OXALIPLATIN [Suspect]
     Indication: RECTAL CANCER
     Route: 042
     Dates: start: 20071126, end: 20071126

REACTIONS (3)
  - COLONIC OBSTRUCTION [None]
  - INTESTINAL PERFORATION [None]
  - PROCTALGIA [None]
